FAERS Safety Report 15477818 (Version 1)
Quarter: 2018Q4

REPORT INFORMATION
  Report Type: Spontaneous
  Country: US (occurrence: US)
  Receive Date: 20181002
  Receipt Date: 20181002
  Transmission Date: 20190205
  Serious: Yes (Death)
  Sender: FDA-Public Use
  Company Number: None

PATIENT
  Age: 83 Year
  Sex: Female

DRUGS (1)
  1. CAPECITABINE. [Suspect]
     Active Substance: CAPECITABINE
     Dosage: ?          OTHER FREQUENCY:BID X2 WK,1 WK OFF;?
     Route: 048
     Dates: start: 20180710

REACTIONS (1)
  - Death [None]

NARRATIVE: CASE EVENT DATE: 20180902
